FAERS Safety Report 4810799-8 (Version None)
Quarter: 2005Q4

REPORT INFORMATION
  Report Type: 
  Country: None (occurrence: None)
  Receive Date: 20051024
  Receipt Date: 20051014
  Transmission Date: 20060501
  Serious: Yes (Hospitalization, Other)
  Sender: FDA-Public Use
  Company Number: KII-2005-0019040

PATIENT
  Age: 33 Year
  Sex: Female

DRUGS (4)
  1. MORPHINE SULFATE [Suspect]
     Dosage: ORAL
     Route: 048
  2. BACLOFEN [Suspect]
     Dosage: ORAL
     Route: 048
  3. TRAZODONE HCL [Suspect]
     Dosage: ORAL
     Route: 048
  4. ALPRAZOLAM [Suspect]
     Dosage: ORAL
     Route: 048

REACTIONS (3)
  - COMA [None]
  - DEPRESSED LEVEL OF CONSCIOUSNESS [None]
  - THERAPY NON-RESPONDER [None]
